FAERS Safety Report 24670512 (Version 1)
Quarter: 2024Q4

REPORT INFORMATION
  Report Type: Spontaneous
  Country: CN (occurrence: CN)
  Receive Date: 20241127
  Receipt Date: 20241127
  Transmission Date: 20250115
  Serious: Yes (Hospitalization, Other)
  Sender: BAXTER
  Company Number: None

PATIENT
  Age: 62 Year
  Sex: Female
  Weight: 57 kg

DRUGS (6)
  1. CYCLOPHOSPHAMIDE [Suspect]
     Active Substance: CYCLOPHOSPHAMIDE
     Indication: Chemotherapy
     Dosage: 0.98 G, ONE TIME IN 21 DAYS DILUTED WITH 0.9% SODIUM CHLORIDE INJECTION 100 ML
     Route: 041
     Dates: start: 20241022, end: 20241022
  2. CYCLOPHOSPHAMIDE [Suspect]
     Active Substance: CYCLOPHOSPHAMIDE
     Indication: Breast cancer female
  3. DEXTROSE [Suspect]
     Active Substance: DEXTROSE MONOHYDRATE
     Indication: Medication dilution
     Dosage: 5% GLUCOSE INJECTION 250 ML USED TO DILUTE 32.8 MG DOXORUBICIN HYDROCHLORIDE LIPOSOME
     Route: 065
     Dates: start: 20241022
  4. SODIUM CHLORIDE [Suspect]
     Active Substance: SODIUM CHLORIDE
     Indication: Medication dilution
     Dosage: 0.9% SODIUM CHLORIDE INJECTION 100 ML USED TO DILUTE 0.98 G OF CYCLOPHOSPHAMIDE
     Route: 065
     Dates: start: 20241022
  5. DOXORUBICIN HYDROCHLORIDE [Suspect]
     Active Substance: DOXORUBICIN HYDROCHLORIDE
     Indication: Chemotherapy
     Dosage: 32.8 G, ONE TIME IN 21 DAYS DILUTED WITH 5% GLUCOSE INJECTION 250 ML
     Route: 041
     Dates: start: 20241022, end: 20241022
  6. DOXORUBICIN HYDROCHLORIDE [Suspect]
     Active Substance: DOXORUBICIN HYDROCHLORIDE
     Indication: Breast cancer female

REACTIONS (3)
  - Hepatic function abnormal [Not Recovered/Not Resolved]
  - Chronic hepatitis B [Unknown]
  - Hepatic failure [Unknown]

NARRATIVE: CASE EVENT DATE: 20241109
